FAERS Safety Report 5563013-2 (Version None)
Quarter: 2007Q4

REPORT INFORMATION
  Report Type: 
  Country: None (occurrence: None)
  Receive Date: 20071217
  Receipt Date: 20071204
  Transmission Date: 20080405
  Serious: Yes (Death, Life-Threatening)
  Sender: FDA-Public Use
  Company Number: FR-ROCHE-503414

PATIENT
  Age: 83 Year
  Sex: Female
  Weight: 62 kg

DRUGS (5)
  1. XELODA [Suspect]
     Route: 048
     Dates: start: 20070517, end: 20070521
  2. RIVOTRIL [Concomitant]
     Route: 048
     Dates: start: 20070510, end: 20070521
  3. MOTILIUM [Concomitant]
     Route: 048
     Dates: start: 20070417, end: 20070521
  4. RAMIPRIL [Concomitant]
     Route: 048
     Dates: start: 20070423, end: 20070521
  5. CORTANCYL [Concomitant]
     Route: 048
     Dates: start: 20070425, end: 20070521

REACTIONS (1)
  - TOXIC ENCEPHALOPATHY [None]
